FAERS Safety Report 6243802-1 (Version None)
Quarter: 2009Q2

REPORT INFORMATION
  Report Type: 
  Country: None (occurrence: None)
  Receive Date: 20090624
  Receipt Date: 20090610
  Transmission Date: 20091009
  Serious: Yes (Other)
  Sender: FDA-Public Use
  Company Number: PHEH2009US06064

PATIENT
  Sex: Female

DRUGS (4)
  1. DIOVAN HCT [Suspect]
     Dosage: 80/12.5 MG/DAY
     Route: 048
     Dates: start: 20000101
  2. LOTREL [Suspect]
     Dosage: 5/20 MG
     Route: 048
     Dates: start: 20000101
  3. TOPROL-XL [Suspect]
     Dosage: 100 MG, UNK
     Dates: start: 20000101
  4. INFLUENZA VACCINE [Concomitant]

REACTIONS (4)
  - DIABETES MELLITUS [None]
  - FATIGUE [None]
  - INFLUENZA [None]
  - LETHARGY [None]
